FAERS Safety Report 16225086 (Version 1)
Quarter: 2019Q2

REPORT INFORMATION
  Report Type: Spontaneous
  Country: NL (occurrence: NL)
  Receive Date: 20190422
  Receipt Date: 20190422
  Transmission Date: 20190711
  Serious: Yes (Hospitalization)
  Sender: FDA-Public Use
  Company Number: NL-BAUSCH-BL-2019-011529

PATIENT
  Age: 79 Year
  Sex: Female

DRUGS (2)
  1. ACICLOVIR [Suspect]
     Active Substance: ACYCLOVIR
     Indication: MENINGITIS
  2. ACICLOVIR [Suspect]
     Active Substance: ACYCLOVIR
     Indication: ENCEPHALITIS
     Route: 065

REACTIONS (6)
  - Headache [Unknown]
  - Memory impairment [Unknown]
  - Affective disorder [Unknown]
  - Monoparesis [Recovered/Resolved]
  - Epilepsy [Unknown]
  - Dizziness [Unknown]
